FAERS Safety Report 21268820 (Version 4)
Quarter: 2023Q2

REPORT INFORMATION
  Report Type: Spontaneous
  Country: FR (occurrence: FR)
  Receive Date: 20220830
  Receipt Date: 20230622
  Transmission Date: 20230722
  Serious: Yes (Death, Life-Threatening, Other)
  Sender: FDA-Public Use
  Company Number: FR-PFIZER INC-PV202200031305

PATIENT
  Age: 52 Year
  Sex: Male

DRUGS (26)
  1. DOXORUBICIN [Suspect]
     Active Substance: DOXORUBICIN
     Indication: Epstein-Barr virus associated lymphoma
     Dosage: 50 MILLIGRAM/SQ. METER, CYCLICAL (50 MILLIGRAM/SQ. METER(EVERY 21 DAYS) 3 WEEK)
     Route: 065
  2. DOXORUBICIN [Suspect]
     Active Substance: DOXORUBICIN
     Indication: Diffuse large B-cell lymphoma
  3. DOXORUBICIN [Suspect]
     Active Substance: DOXORUBICIN
     Indication: High-grade B-cell lymphoma
  4. PREDNISONE [Suspect]
     Active Substance: PREDNISONE
     Indication: Diffuse large B-cell lymphoma
     Dosage: UNK
     Route: 065
  5. VINCRISTINE SULFATE [Suspect]
     Active Substance: VINCRISTINE SULFATE
     Indication: High-grade B-cell lymphoma
     Dosage: 1.4 MILLIGRAM/SQ. METER (3 WEEK) 1.4 MG/M2, EVERY 21 DAYS )
     Route: 065
  6. VINCRISTINE SULFATE [Suspect]
     Active Substance: VINCRISTINE SULFATE
     Indication: Diffuse large B-cell lymphoma
  7. VINCRISTINE SULFATE [Suspect]
     Active Substance: VINCRISTINE SULFATE
     Indication: Epstein-Barr virus associated lymphoma
  8. CYCLOPHOSPHAMIDE [Suspect]
     Active Substance: CYCLOPHOSPHAMIDE
     Indication: Epstein-Barr virus associated lymphoma
     Dosage: 750 MILLIGRAM/SQ. METER, CYCLICAL (750 MILLIGRAM/SQ. METER (EVERY 21 DAYS)
     Route: 065
  9. CYCLOPHOSPHAMIDE [Suspect]
     Active Substance: CYCLOPHOSPHAMIDE
     Indication: Diffuse large B-cell lymphoma
  10. CYCLOPHOSPHAMIDE [Suspect]
     Active Substance: CYCLOPHOSPHAMIDE
     Indication: High-grade B-cell lymphoma
  11. RITUXIMAB [Suspect]
     Active Substance: RITUXIMAB
     Indication: Epstein-Barr virus associated lymphoma
     Dosage: 375 MILLIGRAM/SQ. METER (3 WEEK)
     Route: 042
  12. RITUXIMAB [Suspect]
     Active Substance: RITUXIMAB
     Indication: Diffuse large B-cell lymphoma
     Dosage: 375 MILLIGRAM/SQ. METER, EVERY WEEK (ONE INJECTION PER WEEK FOR 4 WEEKS)
     Route: 065
  13. RITUXIMAB [Suspect]
     Active Substance: RITUXIMAB
     Indication: High-grade B-cell lymphoma
  14. ATENOLOL HCL [Concomitant]
     Indication: Ventricular tachycardia
     Dosage: UNKNOWN
     Route: 065
  15. CYCLOSPORINE [Concomitant]
     Active Substance: CYCLOSPORINE
     Indication: Product used for unknown indication
     Dosage: 175 MG PER DAY, RESPECTIVELY, FOR A RESIDUAL OF 100 NG/ML
     Route: 065
  16. CYCLOSPORINE [Concomitant]
     Active Substance: CYCLOSPORINE
     Dosage: 250 MG PER DAY
     Route: 065
  17. CYCLOSPORINE [Concomitant]
     Active Substance: CYCLOSPORINE
     Dosage: UNK (RESIDUAL OF 100 NG/ML )
     Route: 065
  18. CYCLOSPORINE [Concomitant]
     Active Substance: CYCLOSPORINE
     Dosage: 10 MILLIGRAM, ONCE A DAY
     Route: 065
  19. CYCLOSPORINE [Concomitant]
     Active Substance: CYCLOSPORINE
     Dosage: UNK
     Route: 065
     Dates: start: 2017
  20. ESMOLOL [Concomitant]
     Active Substance: ESMOLOL HYDROCHLORIDE
     Indication: Ventricular arrhythmia
     Dosage: UNK (INFUSION)
     Route: 065
  21. EVEROLIMUS [Concomitant]
     Active Substance: EVEROLIMUS
     Indication: Renal failure
     Dosage: 1.5 MILLIGRAM, ONCE A DAY (UNK (1,5 MG PER DAY WAS ADDED TO USE LOWER CYCLOSPORINE DOSE))
     Route: 065
  22. EVEROLIMUS [Concomitant]
     Active Substance: EVEROLIMUS
     Dosage: UNK
     Route: 065
     Dates: start: 2018
  23. MYCOPHENOLATE MOFETIL HYDROCHLORIDE [Concomitant]
     Active Substance: MYCOPHENOLATE MOFETIL HYDROCHLORIDE
     Indication: Product used for unknown indication
     Dosage: 2 GRAM, ONCE A DAY
     Route: 065
  24. NADOLOL [Concomitant]
     Active Substance: NADOLOL
     Indication: Ventricular arrhythmia
     Dosage: UNK
     Route: 065
  25. THYMOGLOBULINE [Concomitant]
     Active Substance: LAPINE T-LYMPHOCYTE IMMUNE GLOBULIN
     Indication: Product used for unknown indication
     Dosage: UNK (1 MG/KG PER DAY DURING 4 DAYS AS INDUCTION THERAPY)
     Route: 065
  26. PREDNISOLONE [Concomitant]
     Active Substance: PREDNISOLONE
     Indication: Product used for unknown indication
     Dosage: UNK
     Route: 065
     Dates: start: 2017

REACTIONS (10)
  - Arrhythmic storm [Fatal]
  - Bone pain [Fatal]
  - Sudden death [Fatal]
  - Drug ineffective [Fatal]
  - Thrombocytopenia [Unknown]
  - Tachyphylaxis [Unknown]
  - Disease progression [Unknown]
  - Treatment failure [Unknown]
  - Off label use [Unknown]
  - Intentional product use issue [Unknown]
